FAERS Safety Report 7357777-5 (Version None)
Quarter: 2011Q1

REPORT INFORMATION
  Report Type: 
  Country: None (occurrence: None)
  Receive Date: 20110317
  Receipt Date: 20110309
  Transmission Date: 20110831
  Serious: Yes (Hospitalization, Other)
  Sender: FDA-Public Use
  Company Number: BE-NOVOPROD-323922

PATIENT
  Age: 49 Year
  Sex: Male

DRUGS (10)
  1. PRAVASTATIN [Concomitant]
     Dosage: 40 MG, QD
     Route: 065
  2. OMEPRAZOLE [Concomitant]
     Dosage: 20 MG, QD
  3. ZYLORIC [Concomitant]
     Dosage: 100 MG, QD
  4. METFORMAX [Concomitant]
     Dosage: 3 X 0.5 TAB/DAY
     Route: 065
  5. ASAFLOW [Concomitant]
     Dosage: 160 MG, QD
  6. SEROXAT [Concomitant]
     Dosage: 1 TAB, QD
  7. VICTOZA [Suspect]
     Indication: TYPE 2 DIABETES MELLITUS
     Dosage: 0.6 MG, QD
     Route: 065
     Dates: start: 20100801
  8. VICTOZA [Suspect]
     Dosage: 1.2 MG, QD
     Route: 065
     Dates: start: 20110110, end: 20110207
  9. TELMISARTAN [Concomitant]
     Dosage: 80/12.5
  10. INDERAL RETARD [Concomitant]
     Dosage: 160 MG, QD

REACTIONS (3)
  - PANNICULITIS [None]
  - LIPASE INCREASED [None]
  - BLOOD GLUCOSE INCREASED [None]
